FAERS Safety Report 5429207-1 (Version None)
Quarter: 2007Q3

REPORT INFORMATION
  Report Type: 
  Country: None (occurrence: None)
  Receive Date: 20070827
  Receipt Date: 20070827
  Transmission Date: 20080115
  Serious: Yes (Life-Threatening, Hospitalization, Other)
  Sender: FDA-Public Use
  Company Number: None

PATIENT
  Sex: Male
  Weight: 83.9154 kg

DRUGS (4)
  1. ZYVOX [Suspect]
     Indication: POST PROCEDURAL COMPLICATION
     Dosage: TWICE DAILY  PO
     Route: 048
     Dates: start: 20070622, end: 20070729
  2. ZYVOX [Suspect]
     Indication: STAPHYLOCOCCAL INFECTION
     Dosage: TWICE DAILY  PO
     Route: 048
     Dates: start: 20070622, end: 20070729
  3. AVELOX [Suspect]
     Indication: POST PROCEDURAL COMPLICATION
     Dosage: ONCE DAILY   PO
     Route: 048
     Dates: start: 20070622, end: 20070729
  4. AVELOX [Suspect]
     Indication: STAPHYLOCOCCAL INFECTION
     Dosage: ONCE DAILY   PO
     Route: 048
     Dates: start: 20070622, end: 20070729

REACTIONS (8)
  - ANAEMIA [None]
  - BLOOD PRESSURE DECREASED [None]
  - CARDIAC FAILURE CONGESTIVE [None]
  - COLITIS [None]
  - DIARRHOEA [None]
  - MYOCARDIAL INFARCTION [None]
  - PNEUMONIA [None]
  - RENAL FAILURE [None]
